FAERS Safety Report 25624867 (Version 1)
Quarter: 2025Q3

REPORT INFORMATION
  Report Type: Spontaneous
  Country: US (occurrence: US)
  Receive Date: 20250731
  Receipt Date: 20250731
  Transmission Date: 20251020
  Serious: Yes (Other)
  Sender: MERCK SHARP & DOHME LLC
  Company Number: US-009507513-2312676

PATIENT
  Age: 28 Year
  Sex: Male
  Weight: 87.09 kg

DRUGS (5)
  1. ELBASVIR\GRAZOPREVIR [Suspect]
     Active Substance: ELBASVIR\GRAZOPREVIR
     Indication: Chronic hepatitis C
     Route: 048
     Dates: start: 20180531, end: 20180627
  2. METHADONE [Concomitant]
     Active Substance: METHADONE HYDROCHLORIDE
     Route: 048
     Dates: start: 20180322
  3. MIRTAZAPINE [Concomitant]
     Active Substance: MIRTAZAPINE
     Route: 048
     Dates: start: 20180611
  4. QUETIAPINE [Concomitant]
     Active Substance: QUETIAPINE
     Route: 048
  5. PANTOPRAZOLE [Concomitant]
     Active Substance: PANTOPRAZOLE
     Route: 048

REACTIONS (1)
  - Chromaturia [Recovered/Resolved]

NARRATIVE: CASE EVENT DATE: 20180626
